FAERS Safety Report 14380802 (Version 2)
Quarter: 2018Q1

REPORT INFORMATION
  Report Type: Report from Study
  Country: None (occurrence: JP)
  Receive Date: 20180112
  Receipt Date: 20180112
  Transmission Date: 20180509
  Serious: Yes (Hospitalization)
  Sender: FDA-Public Use
  Company Number: JP-VIFOR (INTERNATIONAL) INC.-VIT-2016-07027

PATIENT
  Age: 67 Year
  Sex: Male
  Weight: 64.4 kg

DRUGS (33)
  1. CALBLOCK [Concomitant]
     Active Substance: AZELNIDIPINE
     Indication: ATRIOVENTRICULAR BLOCK
  2. EPOGIN [Concomitant]
     Active Substance: ERYTHROPOIETIN
     Dates: start: 20170613
  3. OXAROL [Concomitant]
     Active Substance: MAXACALCITOL
     Dates: start: 20160702
  4. REGPARA [Concomitant]
     Active Substance: CINACALCET HYDROCHLORIDE
     Route: 048
  5. ALDOMET [Concomitant]
     Active Substance: METHYLDOPA
     Route: 048
  6. AIMIX [Concomitant]
     Active Substance: AMLODIPINE BESYLATE\IRBESARTAN
     Indication: HYPERTENSION
     Route: 048
     Dates: start: 20170406
  7. NESP [Concomitant]
     Active Substance: DARBEPOETIN ALFA
     Dates: start: 20161001, end: 20161217
  8. NESP [Concomitant]
     Active Substance: DARBEPOETIN ALFA
     Dates: end: 20160623
  9. OXAROL [Concomitant]
     Active Substance: MAXACALCITOL
     Dates: end: 20160630
  10. OXAROL [Concomitant]
     Active Substance: MAXACALCITOL
     Dates: end: 20170204
  11. KAYEXALATE [Concomitant]
     Active Substance: SODIUM POLYSTYRENE SULFONATE
     Route: 048
  12. VELPHORO [Suspect]
     Active Substance: FERRIC OXYHYDROXIDE
     Indication: HYPERPHOSPHATAEMIA
     Route: 048
     Dates: start: 20160604
  13. EPOGIN [Concomitant]
     Active Substance: ERYTHROPOIETIN
     Dates: end: 20160623
  14. NESP [Concomitant]
     Active Substance: DARBEPOETIN ALFA
     Dates: start: 20161224, end: 20170311
  15. CALCIUM CARBONATE. [Concomitant]
     Active Substance: CALCIUM CARBONATE
     Indication: HYPERPHOSPHATAEMIA
     Route: 048
  16. ARTIST [Concomitant]
     Active Substance: CARVEDILOL
     Route: 048
     Dates: start: 20161126
  17. EPOGIN [Concomitant]
     Active Substance: ERYTHROPOIETIN
     Dates: start: 20170606, end: 20170610
  18. NESP [Concomitant]
     Active Substance: DARBEPOETIN ALFA
     Dates: start: 20160625, end: 20160818
  19. BAYASPIRIN [Concomitant]
     Active Substance: ASPIRIN
     Route: 048
  20. CARDENALIN [Concomitant]
     Active Substance: DOXAZOSIN MESYLATE
     Indication: HYPERTENSION
     Route: 048
     Dates: end: 20170406
  21. EPOGIN [Concomitant]
     Active Substance: ERYTHROPOIETIN
     Dates: start: 20170518, end: 20170603
  22. NESP [Concomitant]
     Active Substance: DARBEPOETIN ALFA
     Dates: start: 20160910, end: 20160917
  23. NESP [Concomitant]
     Active Substance: DARBEPOETIN ALFA
     Dates: start: 20170318, end: 20170401
  24. ARTIST [Concomitant]
     Active Substance: CARVEDILOL
     Route: 048
     Dates: end: 20161126
  25. CARDENALIN [Concomitant]
     Active Substance: DOXAZOSIN MESYLATE
     Route: 048
     Dates: start: 20170406
  26. FOSRENOL [Concomitant]
     Active Substance: LANTHANUM CARBONATE
     Route: 048
     Dates: start: 20160922
  27. EXFORGE [Concomitant]
     Active Substance: AMLODIPINE BESYLATE\VALSARTAN
     Route: 048
     Dates: end: 20170406
  28. MECOBALAMIN [Concomitant]
     Active Substance: METHYLCOBALAMIN
     Route: 048
     Dates: start: 20160604
  29. NESP [Concomitant]
     Active Substance: DARBEPOETIN ALFA
     Dates: start: 20160820, end: 20160908
  30. OXAROL [Concomitant]
     Active Substance: MAXACALCITOL
     Dates: start: 20170207
  31. FOSRENOL [Concomitant]
     Active Substance: LANTHANUM CARBONATE
     Indication: HYPERPHOSPHATAEMIA
     Route: 048
     Dates: end: 20160921
  32. NEXIUM [Concomitant]
     Active Substance: ESOMEPRAZOLE MAGNESIUM
     Indication: GASTRITIS PROPHYLAXIS
     Route: 048
  33. CALBLOCK [Concomitant]
     Active Substance: AZELNIDIPINE
     Indication: BRADYCARDIA
     Route: 048
     Dates: start: 20161126, end: 20170406

REACTIONS (9)
  - Serum ferritin increased [Recovered/Resolved]
  - Atrioventricular block second degree [Unknown]
  - Hypoaesthesia [Recovering/Resolving]
  - Hypertension [Recovering/Resolving]
  - Bradycardia [Unknown]
  - Hyperphosphataemia [Recovering/Resolving]
  - Abdominal discomfort [Recovering/Resolving]
  - Nephrogenic anaemia [Recovering/Resolving]
  - Condition aggravated [Recovering/Resolving]

NARRATIVE: CASE EVENT DATE: 20160604
